FAERS Safety Report 21719326 (Version 1)
Quarter: 2022Q4

REPORT INFORMATION
  Report Type: Report from Study
  Country: PR (occurrence: PR)
  Receive Date: 20221213
  Receipt Date: 20221213
  Transmission Date: 20230113
  Serious: Yes (Hospitalization)
  Sender: FDA-Public Use
  Company Number: PR-ABBVIE-4232168

PATIENT
  Sex: Male
  Weight: 65.317 kg

DRUGS (1)
  1. VENCLEXTA [Suspect]
     Active Substance: VENETOCLAX
     Indication: Acute myeloid leukaemia
     Route: 048
     Dates: start: 20220110

REACTIONS (3)
  - Nasopharyngitis [Not Recovered/Not Resolved]
  - Platelet count decreased [Unknown]
  - Haemoglobin decreased [Unknown]
